FAERS Safety Report 7360747-4 (Version None)
Quarter: 2011Q1

REPORT INFORMATION
  Report Type: 
  Country: None (occurrence: None)
  Receive Date: 20110318
  Receipt Date: 20091122
  Transmission Date: 20110831
  Serious: Yes (Hospitalization, Other)
  Sender: FDA-Public Use
  Company Number: US-BAYER-200940422NA

PATIENT
  Sex: Male
  Weight: 77.098 kg

DRUGS (3)
  1. INSULIN [Concomitant]
     Dosage: UNK
  2. NOREPINEPHRINE BITARTRATE [Concomitant]
     Dosage: UNK
     Dates: start: 20010914
  3. TRASYLOL [Suspect]
     Indication: CORONARY ARTERY BYPASS
     Route: 042
     Dates: start: 20010914

REACTIONS (12)
  - RENAL FAILURE [None]
  - RENAL INJURY [None]
  - ANHEDONIA [None]
  - ANXIETY [None]
  - EMOTIONAL DISTRESS [None]
  - STRESS [None]
  - UNEVALUABLE EVENT [None]
  - INJURY [None]
  - DEPRESSION [None]
  - PAIN [None]
  - RENAL IMPAIRMENT [None]
  - FEAR [None]
